FAERS Safety Report 4532122-9 (Version None)
Quarter: 2004Q4

REPORT INFORMATION
  Report Type: 
  Country: None (occurrence: None)
  Receive Date: 20041217
  Receipt Date: 20041207
  Transmission Date: 20050328
  Serious: Yes (Disabling)
  Sender: FDA-Public Use
  Company Number: 2004SE06830

PATIENT
  Age: 72 Year
  Sex: Male

DRUGS (1)
  1. NAROPIN [Suspect]
     Indication: EPIDURAL ANAESTHESIA
     Dates: start: 20040914, end: 20040914

REACTIONS (3)
  - ANAL SPHINCTER ATONY [None]
  - DRUG TOXICITY [None]
  - PARAPLEGIA [None]
